FAERS Safety Report 12298104 (Version 3)
Quarter: 2016Q2

REPORT INFORMATION
  Report Type: Spontaneous
  Country: US (occurrence: US)
  Receive Date: 20160422
  Receipt Date: 20160601
  Transmission Date: 20160815
  Serious: Yes (Other)
  Sender: FDA-Public Use
  Company Number: US-SA-2016SA076026

PATIENT
  Age: 86 Year
  Sex: Female

DRUGS (3)
  1. HUMALOG [Concomitant]
     Active Substance: INSULIN LISPRO
  2. LANTUS SOLOSTAR [Suspect]
     Active Substance: INSULIN GLARGINE
     Indication: TYPE 2 DIABETES MELLITUS
     Dosage: DOSE:80 UNIT(S)
     Route: 065
     Dates: start: 2006
  3. SOLOSTAR [Suspect]
     Active Substance: DEVICE
     Indication: TYPE 2 DIABETES MELLITUS
     Dates: start: 2006

REACTIONS (6)
  - Upper limb fracture [Unknown]
  - Arthropathy [Unknown]
  - Breast disorder [Unknown]
  - Lymphoedema [Unknown]
  - Fall [Unknown]
  - Injection site bruising [Unknown]

NARRATIVE: CASE EVENT DATE: 20160307
